FAERS Safety Report 6542784-2 (Version None)
Quarter: 2010Q1

REPORT INFORMATION
  Report Type: 
  Country: None (occurrence: None)
  Receive Date: 20100114
  Receipt Date: 20100106
  Transmission Date: 20100710
  Serious: Yes (Other)
  Sender: FDA-Public Use
  Company Number: 20100001USST

PATIENT
  Age: 70 Year
  Sex: Female

DRUGS (2)
  1. LEVOCARNITINE [Suspect]
     Dosage: 2 DOSES, IV
     Route: 042
     Dates: start: 20100102, end: 20100105
  2. WARFARIN SODIUM [Suspect]
     Indication: HEART VALVE REPLACEMENT
     Dosage: 5MG, 6 DAYS/WK, ORAL
     Route: 048

REACTIONS (1)
  - INTERNATIONAL NORMALISED RATIO INCREASED [None]
